FAERS Safety Report 16902054 (Version 1)
Quarter: 2019Q4

REPORT INFORMATION
  Report Type: Report from Study
  Country: IN (occurrence: IN)
  Receive Date: 20191010
  Receipt Date: 20191010
  Transmission Date: 20200122
  Serious: Yes (Hospitalization)
  Sender: FDA-Public Use
  Company Number: IN-KARYOPHARM THERAPEUTICS, INC.-2018KPT000288

PATIENT
  Age: 34 Year
  Sex: Male
  Weight: 68 kg

DRUGS (18)
  1. SELINEXOR [Suspect]
     Active Substance: SELINEXOR
     Dosage: 60 MG, 2X/WEEK
     Route: 048
     Dates: start: 20180525, end: 20180605
  2. ONDANSETRON [Concomitant]
     Active Substance: ONDANSETRON
     Dosage: 8 MG, PRN
     Route: 048
     Dates: start: 20180427, end: 20180427
  3. LEVOFLOX [Concomitant]
     Active Substance: LEVOFLOXACIN
     Indication: FEBRILE NEUTROPENIA
     Dosage: 500 MG, QD
     Route: 048
     Dates: start: 20180504
  4. ONDANSETRON [Concomitant]
     Active Substance: ONDANSETRON
     Indication: VOMITING
     Dosage: 8 MG, PRN
     Route: 048
     Dates: start: 20180420, end: 20180420
  5. ONDANSETRON [Concomitant]
     Active Substance: ONDANSETRON
     Dosage: 8 MG, PRN
     Route: 048
     Dates: start: 20180506, end: 20180506
  6. AUGMENTIN [Concomitant]
     Active Substance: AMOXICILLIN\CLAVULANATE POTASSIUM
     Indication: FEBRILE NEUTROPENIA
     Dosage: 625 MG, BID
     Route: 048
     Dates: start: 20180504
  7. DEXTROMETHORPHAN [Concomitant]
     Active Substance: DEXTROMETHORPHAN
     Indication: ADVERSE EVENT
     Dosage: 5 MG, UNK
     Dates: start: 20180502
  8. SELINEXOR [Suspect]
     Active Substance: SELINEXOR
     Dosage: 80 MG, WEEKLY
     Dates: start: 20180606
  9. CROCIN [Concomitant]
     Active Substance: ACETAMINOPHEN
     Indication: PYREXIA
     Dosage: 500 MG, PRN
     Route: 048
     Dates: start: 20180504
  10. CHLORPHENIRAMINE MALEATE. [Concomitant]
     Active Substance: CHLORPHENIRAMINE MALEATE
     Indication: ADVERSE EVENT
     Dosage: 2.5 MG, UNK
     Dates: start: 20180502
  11. SELINEXOR [Suspect]
     Active Substance: SELINEXOR
     Indication: DIFFUSE LARGE B-CELL LYMPHOMA
     Dosage: 60 MG, 2X/WEEK
     Route: 048
     Dates: start: 20180420, end: 20180514
  12. PARACETAMOL [Concomitant]
     Active Substance: ACETAMINOPHEN
     Indication: ADVERSE EVENT
     Dosage: 650 MG, PRN
     Route: 048
     Dates: start: 20180503, end: 20180503
  13. GUAIPHENESIN [Concomitant]
     Active Substance: GUAIFENESIN
     Indication: COUGH
     Dosage: 50 MG, UNK
     Dates: start: 20180502
  14. ONDANSETRON [Concomitant]
     Active Substance: ONDANSETRON
     Dosage: 8 MG, PRN
     Route: 048
     Dates: start: 20180422, end: 20180422
  15. AMMONIUM CHLORIDE. [Concomitant]
     Active Substance: AMMONIUM CHLORIDE
     Indication: ADVERSE EVENT
     Dosage: 60 MG, UNK
     Dates: start: 20180502
  16. ONDANSETRON [Concomitant]
     Active Substance: ONDANSETRON
     Dosage: 8 MG, PRN
     Route: 048
     Dates: start: 20180429, end: 20180429
  17. ONDANSETRON [Concomitant]
     Active Substance: ONDANSETRON
     Dosage: 8 MG, PRN
     Route: 048
     Dates: start: 20180504, end: 20180504
  18. GRILINCTUS [Concomitant]
     Indication: COUGH
     Dosage: UNK
     Route: 048
     Dates: start: 20180504

REACTIONS (3)
  - Cough [Recovered/Resolved]
  - Pyrexia [Recovered/Resolved]
  - Skin infection [Recovered/Resolved]

NARRATIVE: CASE EVENT DATE: 20180519
